FAERS Safety Report 6307835-9 (Version None)
Quarter: 2009Q3

REPORT INFORMATION
  Report Type: 
  Country: None (occurrence: None)
  Receive Date: 20090813
  Receipt Date: 20090806
  Transmission Date: 20100115
  Serious: Yes (Hospitalization)
  Sender: FDA-Public Use
  Company Number: DK-AVENTIS-200918372GDDC

PATIENT
  Age: 49 Year
  Sex: Male

DRUGS (1)
  1. METRONIDAZOLE [Suspect]
     Indication: PROPHYLAXIS
     Dosage: DOSE: UNK
     Dates: start: 20080427

REACTIONS (1)
  - CLOSTRIDIAL INFECTION [None]
